FAERS Safety Report 11064307 (Version 1)
Quarter: 2015Q2

REPORT INFORMATION
  Report Type: Spontaneous
  Country: FR (occurrence: FR)
  Receive Date: 20150424
  Receipt Date: 20150424
  Transmission Date: 20150821
  Serious: Yes (Hospitalization, Other)
  Sender: FDA-Public Use
  Company Number: FR-ASTRAZENECA-2015SE36479

PATIENT
  Age: 27378 Day
  Sex: Female

DRUGS (9)
  1. CRESTOR [Suspect]
     Active Substance: ROSUVASTATIN CALCIUM
     Route: 048
     Dates: end: 201503
  2. LASILIX [Concomitant]
     Active Substance: FUROSEMIDE
  3. AMIODARONE [Suspect]
     Active Substance: AMIODARONE
     Route: 048
     Dates: start: 2011, end: 201412
  4. AMIODARONE [Suspect]
     Active Substance: AMIODARONE
     Route: 048
     Dates: start: 201412, end: 201503
  5. SINGULAIR [Suspect]
     Active Substance: MONTELUKAST SODIUM
     Route: 048
     Dates: end: 201503
  6. AERIUS [Suspect]
     Active Substance: DESLORATADINE
     Route: 048
     Dates: end: 201503
  7. SERETIDE [Concomitant]
     Active Substance: FLUTICASONE FUROATE\SALMETEROL XINAFOATE
     Dosage: 500 TWICE DAILY
  8. PERINDOPRIL [Concomitant]
     Active Substance: PERINDOPRIL
  9. PRADAXA [Concomitant]
     Active Substance: DABIGATRAN ETEXILATE MESYLATE

REACTIONS (5)
  - Inflammation [Unknown]
  - Bronchopneumopathy [Not Recovered/Not Resolved]
  - Pleural effusion [Unknown]
  - Pyrexia [Unknown]
  - Oxygen saturation decreased [Unknown]

NARRATIVE: CASE EVENT DATE: 20150315
